FAERS Safety Report 9660119 (Version 1)
Quarter: 2013Q4

REPORT INFORMATION
  Report Type: Spontaneous
  Country: ES (occurrence: ES)
  Receive Date: 20131031
  Receipt Date: 20131031
  Transmission Date: 20140711
  Serious: Yes (Hospitalization, Other)
  Sender: FDA-Public Use
  Company Number: ES-CELGENEUS-144-50794-13103554

PATIENT
  Age: 71 Year
  Sex: Male

DRUGS (2)
  1. VIDAZA [Suspect]
     Indication: ACUTE MYELOID LEUKAEMIA
     Route: 058
     Dates: start: 201305, end: 20130617
  2. VIDAZA [Suspect]
     Route: 058
     Dates: start: 201307

REACTIONS (1)
  - Pericarditis [Recovered/Resolved]
